FAERS Safety Report 17969668 (Version 1)
Quarter: 2020Q3

REPORT INFORMATION
  Report Type: Other
  Country: US (occurrence: US)
  Receive Date: 20200701
  Receipt Date: 20200701
  Transmission Date: 20201103
  Serious: Yes (Hospitalization)
  Sender: FDA-Public Use
  Company Number: US-WES PHARMA INC-2086941

PATIENT
  Age: 47 Year
  Sex: Male

DRUGS (1)
  1. METHYLPHENIDATE HYDROCHLORIDE. [Suspect]
     Active Substance: METHYLPHENIDATE HYDROCHLORIDE
     Indication: ATTENTION DEFICIT HYPERACTIVITY DISORDER
     Route: 065

REACTIONS (5)
  - Confabulation [Unknown]
  - Agitation [Recovering/Resolving]
  - Condition aggravated [Recovering/Resolving]
  - Attention deficit hyperactivity disorder [Recovering/Resolving]
  - Fall [Unknown]
